FAERS Safety Report 13347505 (Version 5)
Quarter: 2017Q3

REPORT INFORMATION
  Report Type: Spontaneous
  Country: JP (occurrence: JP)
  Receive Date: 20170317
  Receipt Date: 20170828
  Transmission Date: 20171127
  Serious: Yes (Hospitalization, Other)
  Sender: FDA-Public Use
  Company Number: JP-PFIZER INC-2017113482

PATIENT
  Sex: Female

DRUGS (3)
  1. INLYTA [Suspect]
     Active Substance: AXITINIB
     Indication: RENAL CELL CARCINOMA
     Dosage: 8 MG, DAILY
     Route: 048
  2. ZOMETA [Concomitant]
     Active Substance: ZOLEDRONIC ACID
     Dosage: UNK
  3. INLYTA [Suspect]
     Active Substance: AXITINIB
     Dosage: 4 MG, 2X/DAY

REACTIONS (7)
  - Hypercalcaemia [Recovering/Resolving]
  - Fall [Unknown]
  - Palmar-plantar erythrodysaesthesia syndrome [Unknown]
  - Cholecystitis [Unknown]
  - Cerebral haemorrhage [Unknown]
  - Neoplasm progression [Unknown]
  - Fracture [Unknown]

NARRATIVE: CASE EVENT DATE: 201703
